FAERS Safety Report 16799863 (Version 1)
Quarter: 2019Q3

REPORT INFORMATION
  Report Type: Spontaneous
  Country: US (occurrence: US)
  Receive Date: 20190723
  Receipt Date: 20190723
  Transmission Date: 20191005
  Serious: Yes (Disabling)
  Sender: FDA-Public Use
  Company Number: None

PATIENT
  Age: 58 Year
  Sex: Female
  Weight: 63.5 kg

DRUGS (1)
  1. EQUATE DRY EYE RELIEF LUBRICANT EYE DROPS [Suspect]
     Active Substance: GLYCERIN\PROPYLENE GLYCOL
     Indication: DRY EYE
     Dosage: ?          OTHER ROUTE:DROPS IN EYE?
     Dates: start: 20190702, end: 20190709

REACTIONS (7)
  - Diplopia [None]
  - Facial paralysis [None]
  - Ocular hyperaemia [None]
  - Swelling of eyelid [None]
  - Eye pain [None]
  - Eye irritation [None]
  - Eye swelling [None]

NARRATIVE: CASE EVENT DATE: 20190708
